FAERS Safety Report 12520487 (Version 1)
Quarter: 2016Q3

REPORT INFORMATION
  Report Type: Spontaneous
  Country: US (occurrence: US)
  Receive Date: 20160701
  Receipt Date: 20160701
  Transmission Date: 20161109
  Serious: Yes (Death)
  Sender: FDA-Public Use
  Company Number: US-UNITED THERAPEUTICS-UNT-2016-010382

PATIENT
  Age: 70 Year
  Sex: Female
  Weight: 72.56 kg

DRUGS (2)
  1. LETAIRIS [Concomitant]
     Active Substance: AMBRISENTAN
     Indication: PRODUCT USED FOR UNKNOWN INDICATION
  2. TYVASO [Suspect]
     Active Substance: TREPROSTINIL
     Indication: PULMONARY HYPERTENSION
     Dosage: 18-108 ?G, QID
     Dates: start: 20130415

REACTIONS (2)
  - Death [Fatal]
  - Product use issue [Unknown]

NARRATIVE: CASE EVENT DATE: 20160623
